FAERS Safety Report 9076018 (Version 1)
Quarter: 2013Q1

REPORT INFORMATION
  Report Type: Report from Study
  Country: US (occurrence: US)
  Receive Date: 20130129
  Receipt Date: 20130129
  Transmission Date: 20140127
  Serious: No
  Sender: FDA-Public Use
  Company Number: US-ABBOTT-12P-163-0935983-00

PATIENT
  Age: 65 Year
  Sex: Female

DRUGS (12)
  1. HUMIRA 40 MG/0.8 ML PEN [Suspect]
     Indication: CROHN^S DISEASE
     Dosage: LOADING DOSE
     Dates: start: 20120504
  2. AMLODIPINE [Concomitant]
     Indication: BLOOD PRESSURE
     Dosage: DAILY
  3. METOPROLOL [Concomitant]
     Indication: BLOOD PRESSURE
     Dosage: DAILY
  4. NEXIUM [Concomitant]
     Indication: GASTROOESOPHAGEAL REFLUX DISEASE
  5. ATORVASTATIN [Concomitant]
     Indication: BLOOD CHOLESTEROL INCREASED
     Dosage: DAILY
  6. FOSINOPRIL [Concomitant]
     Indication: BLOOD PRESSURE
     Dosage: DAILY
  7. VESICARE [Concomitant]
     Indication: URINARY INCONTINENCE
     Dosage: DAILY
  8. VITAMIN D [Concomitant]
     Indication: VITAMIN D DECREASED
  9. MULTIVITAMIN [Concomitant]
     Indication: VITAMIN SUPPLEMENTATION
     Dosage: DAILY
  10. VITAMIN C [Concomitant]
     Indication: VITAMIN SUPPLEMENTATION
     Dosage: DAILY
  11. PROBIOTIC [Concomitant]
     Indication: VITAMIN SUPPLEMENTATION
     Dosage: DAILY
  12. B12 [Concomitant]
     Indication: VITAMIN B12 DECREASED
     Dosage: SHOT

REACTIONS (1)
  - Injection site pain [Recovered/Resolved]
